FAERS Safety Report 6964442-2 (Version None)
Quarter: 2010Q3

REPORT INFORMATION
  Report Type: 
  Country: None (occurrence: None)
  Receive Date: 20100903
  Receipt Date: 20100823
  Transmission Date: 20110219
  Serious: Yes (Hospitalization)
  Sender: FDA-Public Use
  Company Number: JP-PFIZER INC-2010092850

PATIENT
  Age: 77 Year
  Sex: Male

DRUGS (2)
  1. DETRUSITOL [Suspect]
     Dosage: 2 MG, DAILY
     Dates: start: 20100501
  2. FLIVAS [Concomitant]
     Dosage: UNK

REACTIONS (3)
  - SKIN ODOUR ABNORMAL [None]
  - SURGERY [None]
  - URINE ODOUR ABNORMAL [None]
